FAERS Safety Report 11185229 (Version 3)
Quarter: 2015Q3

REPORT INFORMATION
  Report Type: Report from Study
  Country: US (occurrence: US)
  Receive Date: 20150612
  Receipt Date: 20150720
  Transmission Date: 20151125
  Serious: Yes (Hospitalization, Other)
  Sender: FDA-Public Use
  Company Number: US-GILEAD-2015-0158088

PATIENT
  Age: 33 Year
  Sex: Female

DRUGS (7)
  1. REMODULIN [Concomitant]
     Active Substance: TREPROSTINIL
  2. LOVENOX [Suspect]
     Active Substance: ENOXAPARIN SODIUM
     Indication: THROMBOSIS
     Route: 065
  3. ADCIRCA [Concomitant]
     Active Substance: TADALAFIL
  4. AMBRISENTAN [Suspect]
     Active Substance: AMBRISENTAN
     Indication: PRODUCT USED FOR UNKNOWN INDICATION
     Dosage: 10 MG, QD
     Route: 065
     Dates: start: 20140505
  5. REVATIO [Concomitant]
     Active Substance: SILDENAFIL CITRATE
  6. WARFARIN [Suspect]
     Active Substance: WARFARIN
     Indication: THROMBOSIS
     Route: 065
  7. VELETRI [Concomitant]
     Active Substance: EPOPROSTENOL

REACTIONS (3)
  - Device related infection [Unknown]
  - Rash [Unknown]
  - Catheter site haemorrhage [Unknown]

NARRATIVE: CASE EVENT DATE: 20150715
